FAERS Safety Report 8948171 (Version 2)
Quarter: 2012Q4

REPORT INFORMATION
  Report Type: 
  Country: US (occurrence: US)
  Receive Date: 20121204
  Receipt Date: 20121207
  Transmission Date: 20130627
  Serious: No
  Sender: FDA-Public Use
  Company Number: US-PFIZER INC-2012299462

PATIENT
  Age: 68 Year
  Sex: Female
  Weight: 64.9 kg

DRUGS (9)
  1. BOSULIF [Suspect]
     Indication: CHRONIC MYELOID LEUKEMIA
     Dosage: 500 mg, daily
     Dates: start: 20121126
  2. ACETYLSALICYLIC ACID [Concomitant]
     Indication: ANTICOAGULANT THERAPY
     Dosage: 81 mg, daily
  3. FERROUS SULFATE [Concomitant]
     Dosage: 325 mg, daily
  4. AMLODIPINE [Concomitant]
     Dosage: 10 mg, daily
  5. LOSARTAN POTASSIUM [Concomitant]
     Dosage: 50 mg, daily
  6. DOCUSATE SODIUM [Concomitant]
     Dosage: 100 mg, UNK
  7. OMEPRAZOLE [Concomitant]
     Dosage: 20 mg, daily
  8. METOPROLOL [Concomitant]
     Dosage: 25 mg, 2x/day
  9. WARFARIN [Concomitant]
     Dosage: 50 mg, daily

REACTIONS (6)
  - Chest pain [Recovered/Resolved]
  - Flatulence [Unknown]
  - Dizziness [Recovered/Resolved]
  - Nausea [Unknown]
  - Vomiting [Unknown]
  - Diarrhoea [Unknown]
